FAERS Safety Report 8108663-4 (Version None)
Quarter: 2012Q1

REPORT INFORMATION
  Report Type: 
  Country: None (occurrence: None)
  Receive Date: 20120202
  Receipt Date: 20120116
  Transmission Date: 20120608
  Serious: No
  Sender: FDA-Public Use
  Company Number: US-AMGEN-USASP2012002851

PATIENT
  Age: 61 Year
  Sex: Female

DRUGS (1)
  1. ENBREL [Suspect]
     Indication: RHEUMATOID ARTHRITIS
     Dosage: 25 MG, 2 TIMES/WK
     Dates: start: 20090313

REACTIONS (8)
  - CHEST PAIN [None]
  - SWELLING [None]
  - INJECTION SITE HAEMATOMA [None]
  - HYPERSENSITIVITY [None]
  - BACK PAIN [None]
  - UPPER RESPIRATORY TRACT INFECTION [None]
  - MALAISE [None]
  - RASH [None]
